FAERS Safety Report 21023602 (Version 3)
Quarter: 2023Q2

REPORT INFORMATION
  Report Type: Spontaneous
  Country: SK (occurrence: SK)
  Receive Date: 20220629
  Receipt Date: 20230612
  Transmission Date: 20230721
  Serious: Yes (Other)
  Sender: FDA-Public Use
  Company Number: SK-PFIZER INC-PV202200004466

PATIENT
  Sex: Female

DRUGS (3)
  1. PROLIA [Suspect]
     Active Substance: DENOSUMAB
     Indication: Product used for unknown indication
     Dosage: UNK
     Route: 058
  2. TALAZOPARIB [Suspect]
     Active Substance: TALAZOPARIB
     Indication: Product used for unknown indication
     Dosage: 0.75 MILLIGRAM, QD
     Route: 048
  3. TALAZOPARIB [Suspect]
     Active Substance: TALAZOPARIB
     Dosage: 1 MILLIGRAM, QD
     Route: 048
     Dates: start: 202110

REACTIONS (3)
  - Haemoglobin decreased [Recovered/Resolved]
  - Neoplasm progression [Unknown]
  - Dyspepsia [Unknown]

NARRATIVE: CASE EVENT DATE: 20220201
